FAERS Safety Report 14730355 (Version 3)
Quarter: 2018Q4

REPORT INFORMATION
  Report Type: Report from Study
  Country: CN (occurrence: CN)
  Receive Date: 20180406
  Receipt Date: 20181230
  Transmission Date: 20190204
  Serious: Yes (Death, Hospitalization)
  Sender: FDA-Public Use
  Company Number: CN-AMGEN-CHNCT2017137571

PATIENT
  Age: 43 Year
  Sex: Male
  Weight: 80 kg

DRUGS (10)
  1. DEXAMETHASONE. [Suspect]
     Active Substance: DEXAMETHASONE
     Indication: PLASMA CELL MYELOMA
     Dosage: 20 MG, PER CHEMO REGIM
     Route: 042
     Dates: start: 20170609
  2. CARFILZOMIB [Suspect]
     Active Substance: CARFILZOMIB
     Indication: PLASMA CELL MYELOMA
     Dosage: 40 MG, PER CHEMO REGIM
     Route: 042
     Dates: start: 20170609, end: 20170902
  3. LANSOPRAZOLE. [Concomitant]
     Active Substance: LANSOPRAZOLE
     Dosage: 30 MG, UNK
     Route: 042
     Dates: start: 20170909, end: 20170914
  4. GLUTATHIONE [Concomitant]
     Active Substance: GLUTATHIONE
     Dosage: 1.8 G, UNK
     Route: 042
     Dates: start: 20170909, end: 20170914
  5. TORASEMIDE [Concomitant]
     Active Substance: TORSEMIDE
     Dosage: 20 MG, UNK
     Route: 042
     Dates: start: 20170908, end: 20170914
  6. SODIUM BICARBONATE. [Concomitant]
     Active Substance: SODIUM BICARBONATE
     Dosage: 5 G, UNK
     Route: 048
     Dates: start: 20170821, end: 201712
  7. MIACALCIC [Concomitant]
     Active Substance: CALCITONIN SALMON
     Dosage: UNK
  8. VALACICLOVIR HYDROCHLORIDE [Concomitant]
     Active Substance: VALACYCLOVIR HYDROCHLORIDE
     Dosage: 300 MG, UNK
     Route: 048
     Dates: start: 20170608, end: 20170909
  9. TROPISETRON [Concomitant]
     Active Substance: TROPISETRON
     Dosage: 5 MG, UNK
     Route: 042
     Dates: start: 20170908, end: 20170914
  10. SODIUM POLYSTYRENE SULFONATE. [Concomitant]
     Active Substance: SODIUM POLYSTYRENE SULFONATE
     Dosage: 15 G, UNK
     Route: 048
     Dates: start: 20170909, end: 20170912

REACTIONS (2)
  - End stage renal disease [Fatal]
  - Acute kidney injury [Not Recovered/Not Resolved]

NARRATIVE: CASE EVENT DATE: 20170908
